FAERS Safety Report 9821751 (Version 2)
Quarter: 2014Q1

REPORT INFORMATION
  Report Type: Spontaneous
  Country: US (occurrence: US)
  Receive Date: 20140116
  Receipt Date: 20140220
  Transmission Date: 20141002
  Serious: No
  Sender: FDA-Public Use
  Company Number: US-GILEAD-2014-0092207

PATIENT
  Sex: Female

DRUGS (3)
  1. LETAIRIS [Suspect]
     Indication: PULMONARY HYPERTENSION
     Dosage: 10 MG, QD
     Route: 048
     Dates: start: 20110720
  2. LETAIRIS [Suspect]
     Indication: MICROANGIOPATHY
  3. LETAIRIS [Suspect]
     Indication: PULMONARY EMBOLISM

REACTIONS (3)
  - Dental pulp disorder [Unknown]
  - Tooth extraction [Unknown]
  - Sciatica [Unknown]
